FAERS Safety Report 12924066 (Version 3)
Quarter: 2016Q4

REPORT INFORMATION
  Report Type: Spontaneous
  Country: MY (occurrence: MY)
  Receive Date: 20161109
  Receipt Date: 20161206
  Transmission Date: 20170207
  Serious: Yes (Death)
  Sender: FDA-Public Use
  Company Number: MY-PFIZER INC-2016512969

PATIENT

DRUGS (1)
  1. LEVOPHED [Suspect]
     Active Substance: NOREPINEPHRINE BITARTRATE
     Dosage: UNK

REACTIONS (1)
  - Death [Fatal]

NARRATIVE: CASE EVENT DATE: 20161103
